FAERS Safety Report 8865849 (Version 1)
Quarter: 2012Q4

REPORT INFORMATION
  Report Type: 
  Country: DE (occurrence: DE)
  Receive Date: 20121025
  Receipt Date: 20121025
  Transmission Date: 20130627
  Serious: Yes (Hospitalization, Other)
  Sender: FDA-Public Use
  Company Number: GXKR2012DE003309

PATIENT
  Age: 29 Year
  Sex: Male
  Weight: 72.8 kg

DRUGS (3)
  1. CITALOPRAM [Suspect]
     Indication: DEPRESSION
     Dosage: 20 mg, QD
     Route: 048
  2. DEXTROMETHORPHAN HYDROBROMIDE [Suspect]
     Dosage: 40 dosage forms within 3-4 days
     Route: 048
  3. TAXILAN                                 /GFR/ [Concomitant]
     Indication: RESTLESSNESS
     Dosage: 25 mg, TID
     Route: 048

REACTIONS (6)
  - Pubis fracture [Unknown]
  - Acute psychosis [Recovering/Resolving]
  - Delusion of grandeur [Recovering/Resolving]
  - Hallucination, visual [Recovering/Resolving]
  - Aspartate aminotransferase increased [Unknown]
  - Alanine aminotransferase increased [Unknown]
